FAERS Safety Report 7354502-9 (Version None)
Quarter: 2011Q1

REPORT INFORMATION
  Report Type: 
  Country: None (occurrence: None)
  Receive Date: 20110316
  Receipt Date: 20100909
  Transmission Date: 20110831
  Serious: Yes (Other)
  Sender: FDA-Public Use
  Company Number: US-BAYER-201019688NA

PATIENT
  Sex: Female

DRUGS (7)
  1. PROTONIX [Concomitant]
  2. IBUPROFEN [Concomitant]
  3. YAZ [Suspect]
     Indication: CONTRACEPTION
     Dosage: UNK
     Route: 048
     Dates: start: 20080505, end: 20090530
  4. YASMIN [Suspect]
     Indication: CONTRACEPTION
     Dosage: UNK
     Route: 048
     Dates: start: 20070530, end: 20080505
  5. NEXIUM [Concomitant]
     Dosage: UNK
     Dates: start: 20040101, end: 20090101
  6. ADDERALL 10 [Concomitant]
     Dosage: UNK
     Dates: start: 20040610
  7. NORTREL 7/7/7 [Concomitant]

REACTIONS (3)
  - CHOLECYSTITIS CHRONIC [None]
  - BILIARY DYSKINESIA [None]
  - INJURY [None]
